FAERS Safety Report 5481102-8 (Version None)
Quarter: 2007Q4

REPORT INFORMATION
  Report Type: 
  Country: None (occurrence: None)
  Receive Date: 20071003
  Receipt Date: 20070108
  Transmission Date: 20080405
  Serious: Yes (Hospitalization)
  Sender: FDA-Public Use
  Company Number: 6028893

PATIENT
  Age: 82 Year
  Sex: Female

DRUGS (2)
  1. FLUVOXAMINE MALEATE [Suspect]
     Indication: MAJOR DEPRESSION
     Dosage: 50,000 MG (50 MG, 1 IN 1 D); 100,000 MG (100 MG, 1 IN 1 D)
  2. ZOLPIDEM TARTRATE [Suspect]
     Indication: MAJOR DEPRESSION
     Dosage: 10,000 MG (10 MG, 1 IN 1 D)

REACTIONS (4)
  - AMNESIA [None]
  - DRUG INTERACTION [None]
  - HALLUCINATION, VISUAL [None]
  - SUICIDAL IDEATION [None]
